FAERS Safety Report 10203703 (Version 2)
Quarter: 2014Q2

REPORT INFORMATION
  Report Type: Spontaneous
  Country: JP (occurrence: JP)
  Receive Date: 20140529
  Receipt Date: 20140619
  Transmission Date: 20141212
  Serious: Yes (Hospitalization, Other)
  Sender: FDA-Public Use
  Company Number: JP-JNJFOC-20140516628

PATIENT
  Age: 28 Year
  Sex: Male
  Weight: 51 kg

DRUGS (6)
  1. REMICADE [Suspect]
     Indication: CROHN^S DISEASE
     Route: 042
  2. REMICADE [Suspect]
     Indication: CROHN^S DISEASE
     Route: 042
     Dates: start: 20140515
  3. REMICADE [Suspect]
     Indication: CROHN^S DISEASE
     Route: 042
     Dates: start: 20140403, end: 20140403
  4. VANCOMYCIN HYDROCHLORIDE [Concomitant]
     Route: 065
     Dates: start: 20140417
  5. PARIET [Concomitant]
     Indication: GASTROOESOPHAGEAL REFLUX DISEASE
     Dosage: 10 DF
     Route: 048
     Dates: start: 20140513
  6. ELENTAL [Concomitant]
     Indication: CROHN^S DISEASE
     Dosage: 4 DF
     Route: 048

REACTIONS (4)
  - Pneumonia staphylococcal [Recovered/Resolved]
  - Asthma [Unknown]
  - Crohn^s disease [Unknown]
  - Purpura [Recovering/Resolving]
